FAERS Safety Report 11969494 (Version 1)
Quarter: 2016Q1

REPORT INFORMATION
  Report Type: Spontaneous
  Country: GB (occurrence: GB)
  Receive Date: 20160128
  Receipt Date: 20160128
  Transmission Date: 20160526
  Serious: Yes (Other)
  Sender: FDA-Public Use
  Company Number: GB-WATSON-2016-00638

PATIENT
  Age: 23 Year
  Sex: Female
  Weight: 66 kg

DRUGS (3)
  1. COCODAMOL [Concomitant]
     Active Substance: ACETAMINOPHEN\CODEINE PHOSPHATE
     Indication: PRODUCT USED FOR UNKNOWN INDICATION
     Dosage: UNK UNK, QID (TAKE 1 OR 2 FOUR TIMES A DAY)
     Route: 065
     Dates: start: 20151015, end: 20151022
  2. METRONIDAZOLE (UNKNOWN) [Suspect]
     Active Substance: METRONIDAZOLE
     Indication: PRODUCT USED FOR UNKNOWN INDICATION
     Dosage: UNK UNK, UNKNOWN
     Route: 065
     Dates: start: 20151117
  3. CITALOPRAM [Concomitant]
     Active Substance: CITALOPRAM HYDROBROMIDE
     Indication: PRODUCT USED FOR UNKNOWN INDICATION
     Dosage: 1 DF, DAILY,(AS DIRECTED)
     Route: 065
     Dates: start: 20151117, end: 20151207

REACTIONS (3)
  - Nausea [Recovered/Resolved]
  - Drug interaction [Unknown]
  - Dyspepsia [Unknown]

NARRATIVE: CASE EVENT DATE: 20151117
